FAERS Safety Report 20201267 (Version 1)
Quarter: 2021Q4

REPORT INFORMATION
  Report Type: Spontaneous
  Country: GR (occurrence: GR)
  Receive Date: 20211217
  Receipt Date: 20211217
  Transmission Date: 20220303
  Serious: Yes (Other)
  Sender: FDA-Public Use
  Company Number: GR-PFIZER INC-202101751683

PATIENT
  Age: 55 Year
  Sex: Female

DRUGS (5)
  1. NORVASC [Suspect]
     Active Substance: AMLODIPINE BESYLATE
     Dosage: 10 MG
  2. KEPPRA [Concomitant]
     Active Substance: LEVETIRACETAM
     Dosage: 500 MG
  3. LOPRESSOR [Concomitant]
     Active Substance: METOPROLOL TARTRATE
     Dosage: 100 MG
  4. ZESTRIL [Concomitant]
     Active Substance: LISINOPRIL
     Dosage: 20 MG
  5. MIOREL [BACLOFEN] [Concomitant]
     Dosage: 10 MG

REACTIONS (2)
  - Cerebral haemorrhage [Unknown]
  - Communication disorder [Unknown]
